FAERS Safety Report 13517626 (Version 2)
Quarter: 2017Q2

REPORT INFORMATION
  Report Type: Spontaneous
  Country: US (occurrence: US)
  Receive Date: 20170505
  Receipt Date: 20170511
  Transmission Date: 20170830
  Serious: Yes (Death, Other)
  Sender: FDA-Public Use
  Company Number: US-PFIZER INC-2017194315

PATIENT
  Age: 34 Year
  Sex: Male
  Weight: 92.97 kg

DRUGS (1)
  1. CHANTIX [Suspect]
     Active Substance: VARENICLINE TARTRATE
     Dosage: 1 MG; TOOK 24 OF THEM IN 2.5 MONTHS
     Dates: start: 201403, end: 20140601

REACTIONS (8)
  - Prescription drug used without a prescription [Unknown]
  - Renal failure [Fatal]
  - Palpitations [Unknown]
  - Overdose [Fatal]
  - Weight decreased [Unknown]
  - Muscle spasms [Unknown]
  - Organ failure [Fatal]
  - Asthenia [Unknown]

NARRATIVE: CASE EVENT DATE: 2014
